FAERS Safety Report 22154591 (Version 1)
Quarter: 2023Q1

REPORT INFORMATION
  Report Type: Spontaneous
  Country: US (occurrence: None)
  Receive Date: 20230330
  Receipt Date: 20230330
  Transmission Date: 20230418
  Serious: Yes (Hospitalization, Other)
  Sender: FDA-Public Use
  Company Number: US-ROCHE-3319325

PATIENT
  Sex: Female
  Weight: 77.180 kg

DRUGS (3)
  1. RITUXAN [Suspect]
     Active Substance: RITUXIMAB
     Indication: Myasthenia gravis
     Dosage: 500MG IN 200ML OF NSS; SECOND LOADING DOSE ON 24/MAR/2023
     Route: 042
     Dates: start: 20230223
  2. TYLENOL [Concomitant]
     Active Substance: ACETAMINOPHEN
     Indication: Premedication
     Dosage: (2) 326 MG TABLETS
     Route: 048
     Dates: start: 20230223
  3. SODIUM CHLORIDE [Concomitant]
     Active Substance: SODIUM CHLORIDE
     Indication: Premedication
     Route: 042
     Dates: start: 20230223

REACTIONS (6)
  - Myasthenia gravis crisis [Unknown]
  - Urinary retention [Unknown]
  - Rhinorrhoea [Unknown]
  - Back pain [Unknown]
  - Bladder pain [Unknown]
  - Off label use [Unknown]

NARRATIVE: CASE EVENT DATE: 20230223
